FAERS Safety Report 24111313 (Version 1)
Quarter: 2024Q3

REPORT INFORMATION
  Report Type: Spontaneous
  Country: US (occurrence: US)
  Receive Date: 20240718
  Receipt Date: 20240718
  Transmission Date: 20241016
  Serious: Yes (Other)
  Sender: SANOFI AVENTIS
  Company Number: US-SA-SAC20240717000897

PATIENT
  Age: 7 Year
  Sex: Female
  Weight: 24.49 kg

DRUGS (2)
  1. DUPIXENT [Suspect]
     Active Substance: DUPILUMAB
     Indication: Dermatitis atopic
     Dosage: 300 MG, Q4W
     Route: 058
     Dates: end: 202407
  2. DUPIXENT [Suspect]
     Active Substance: DUPILUMAB
     Indication: Dermatitis atopic
     Dosage: UNK
     Dates: start: 202407

REACTIONS (4)
  - Loss of consciousness [Unknown]
  - Fear of injection [Unknown]
  - Dizziness [Recovered/Resolved]
  - Wrong device used [Unknown]

NARRATIVE: CASE EVENT DATE: 20240701
